FAERS Safety Report 18788358 (Version 1)
Quarter: 2021Q1

REPORT INFORMATION
  Report Type: Spontaneous
  Country: US (occurrence: US)
  Receive Date: 20210125
  Receipt Date: 20210125
  Transmission Date: 20210419
  Serious: Yes (Other)
  Sender: FDA-Public Use
  Company Number: US-ROCHE-2691743

PATIENT
  Age: 46 Year
  Sex: Female

DRUGS (1)
  1. RITUXAN [Suspect]
     Active Substance: RITUXIMAB
     Indication: RHEUMATOID ARTHRITIS
     Dosage: 2 DOSES IN 2 WEEKS AND THEN EVERY 6 MONTHS
     Route: 041
     Dates: start: 201910

REACTIONS (9)
  - Back pain [Unknown]
  - Alopecia [Not Recovered/Not Resolved]
  - Fatigue [Unknown]
  - Weight increased [Not Recovered/Not Resolved]
  - Arthralgia [Unknown]
  - Neuropathy peripheral [Not Recovered/Not Resolved]
  - Staphylococcal infection [Not Recovered/Not Resolved]
  - Paraesthesia [Unknown]
  - Radiculopathy [Unknown]

NARRATIVE: CASE EVENT DATE: 201910
